FAERS Safety Report 6287608-6 (Version None)
Quarter: 2009Q3

REPORT INFORMATION
  Report Type: 
  Country: None (occurrence: None)
  Receive Date: 20090727
  Receipt Date: 20090727
  Transmission Date: 20100115
  Serious: Yes (Hospitalization)
  Sender: FDA-Public Use
  Company Number: None

PATIENT
  Sex: Male
  Weight: 83.9154 kg

DRUGS (1)
  1. VESICARE [Suspect]
     Dosage: 10 MG 1 TAB/DAY MOUTH
     Route: 048
     Dates: start: 20090623, end: 20090717

REACTIONS (2)
  - CONSTIPATION [None]
  - FAECALOMA [None]
